FAERS Safety Report 8050514-0 (Version None)
Quarter: 2012Q1

REPORT INFORMATION
  Report Type: 
  Country: None (occurrence: None)
  Receive Date: 20120117
  Receipt Date: 20120106
  Transmission Date: 20120608
  Serious: Yes (Other)
  Sender: FDA-Public Use
  Company Number: US-US-EMD SERONO, INC.-7100222

PATIENT
  Sex: Female

DRUGS (3)
  1. REBIF [Suspect]
     Indication: PRODUCT USED FOR UNKNOWN INDICATION
     Route: 058
     Dates: start: 20110916, end: 20111130
  2. REBIF [Suspect]
     Route: 058
     Dates: start: 20120103
  3. RECLAST [Concomitant]
     Indication: OSTEOPOROSIS

REACTIONS (3)
  - MIGRAINE [None]
  - INJECTION SITE ERYTHEMA [None]
  - GALLBLADDER OEDEMA [None]
